FAERS Safety Report 19495723 (Version 1)
Quarter: 2021Q3

REPORT INFORMATION
  Report Type: Spontaneous
  Country: DE (occurrence: DE)
  Receive Date: 20210706
  Receipt Date: 20210706
  Transmission Date: 20211014
  Serious: Yes (Hospitalization)
  Sender: FDA-Public Use
  Company Number: DE-TEVA-2021-DE-1929111

PATIENT
  Age: 92 Year
  Sex: Male

DRUGS (10)
  1. TORASEMID [Suspect]
     Active Substance: TORSEMIDE
     Dosage: 5 MILLIGRAM DAILY; 1?0?0?0
     Route: 048
  2. TOVEDESO 7MG [Concomitant]
     Dosage: 3.5 MILLIGRAM DAILY; 7 MG, 0.5?0?0?0, SUSTAINED?RELEASE TABLETS
     Route: 048
  3. METAMIZOL [Concomitant]
     Active Substance: METAMIZOLE SODIUM
     Dosage: 500 MILLIGRAM DAILY; 0?0?0?1
     Route: 048
  4. OXYCODON AL 10MG [Concomitant]
     Dosage: 20 MILLIGRAM DAILY; 1?0?1?0
     Route: 048
  5. DEKRISTOL 20000I.E. [Concomitant]
     Dosage: 20,000 IU,UNIT DOSE:1DOSAGEFORM
     Route: 048
  6. ATORVASTATIN [Concomitant]
     Active Substance: ATORVASTATIN
     Dosage: 40 MILLIGRAM DAILY; 0?0?0?1
     Route: 048
  7. MACROGOL ABZ BALANCE [Concomitant]
     Active Substance: POLYETHYLENE GLYCOL 3350\POTASSIUM CHLORIDE\SODIUM BICARBONATE\SODIUM CHLORIDE
     Dosage: 1 DOSAGE FORMS DAILY; 1?0?0?0, POWDER
     Route: 048
  8. PANTOPRAZOL [Concomitant]
     Active Substance: PANTOPRAZOLE SODIUM
     Dosage: 80 MILLIGRAM DAILY; 1?0?1?0
     Route: 048
  9. ACETYLSALICYLSAURE [Concomitant]
     Active Substance: ASPIRIN
     Dosage: 100 MILLIGRAM DAILY; 0?1?0?0
     Route: 048
  10. LEVOTHYROXIN?NATRIUM [Concomitant]
     Active Substance: LEVOTHYROXINE SODIUM
     Dosage: .05 MILLIGRAM DAILY; 1?0?0?0
     Route: 048

REACTIONS (5)
  - Facial paralysis [Unknown]
  - Headache [Unknown]
  - Fall [Unknown]
  - Dizziness [Unknown]
  - General physical health deterioration [Unknown]
